FAERS Safety Report 18449229 (Version 1)
Quarter: 2020Q4

REPORT INFORMATION
  Report Type: Spontaneous
  Country: HR (occurrence: HR)
  Receive Date: 20201030
  Receipt Date: 20201030
  Transmission Date: 20210114
  Serious: Yes (Other)
  Sender: FDA-Public Use
  Company Number: HR-TEVA-2020-HR-1842825

PATIENT
  Sex: Female

DRUGS (4)
  1. NORMABEL [Suspect]
     Active Substance: DIAZEPAM
     Route: 048
     Dates: start: 20200907, end: 20200907
  2. THEOBROMIN [Suspect]
     Active Substance: THEOBROMINE
     Route: 048
     Dates: start: 20200907, end: 20200907
  3. OLANZAPIN [Suspect]
     Active Substance: OLANZAPINE
     Route: 048
     Dates: start: 20200907, end: 20200907
  4. BUPRENORFINA [Suspect]
     Active Substance: BUPRENORPHINE
     Route: 048
     Dates: start: 20200907, end: 20200907

REACTIONS (4)
  - Suicide attempt [Unknown]
  - Loss of consciousness [Unknown]
  - Somnolence [Unknown]
  - Intentional overdose [Unknown]

NARRATIVE: CASE EVENT DATE: 20200907
